FAERS Safety Report 16363519 (Version 1)
Quarter: 2019Q2

REPORT INFORMATION
  Report Type: Spontaneous
  Country: FR (occurrence: FR)
  Receive Date: 20190528
  Receipt Date: 20190528
  Transmission Date: 20190711
  Serious: Yes (Other)
  Sender: FDA-Public Use
  Company Number: FR-MYLANLABS-2019M1048708

PATIENT
  Age: 21 Year
  Sex: Male

DRUGS (6)
  1. ZOPICLONE [Concomitant]
     Active Substance: ZOPICLONE
     Indication: POOR QUALITY SLEEP
     Dosage: 7.5 MILLIGRAM, QD
     Route: 048
  2. RIVOTRIL [Concomitant]
     Active Substance: CLONAZEPAM
     Indication: BEHAVIOUR DISORDER
     Dosage: 9 MILLIGRAM, QD
     Route: 048
  3. TRANXENE [Concomitant]
     Active Substance: CLORAZEPATE DIPOTASSIUM
     Indication: BEHAVIOUR DISORDER
     Dosage: 10 MILLIGRAM, QD
     Route: 048
  4. ATARAX [Suspect]
     Active Substance: HYDROXYZINE HYDROCHLORIDE
     Indication: BEHAVIOUR DISORDER
     Dosage: 275 MILLIGRAM, QD
     Route: 048
  5. BOTOX [Suspect]
     Active Substance: ONABOTULINUMTOXINA
     Indication: DYSTONIA
     Dosage: UNK UNK, QD
     Route: 030
     Dates: start: 20160520, end: 20160520
  6. LEPONEX [Suspect]
     Active Substance: CLOZAPINE
     Indication: BEHAVIOUR DISORDER
     Dosage: 1 DOSAGE FORM, QD
     Route: 048

REACTIONS (2)
  - Off label use [Unknown]
  - Urinary retention [Recovered/Resolved]

NARRATIVE: CASE EVENT DATE: 20160520
